FAERS Safety Report 17213783 (Version 1)
Quarter: 2019Q4

REPORT INFORMATION
  Report Type: Report from Study
  Country: CA (occurrence: CA)
  Receive Date: 20191230
  Receipt Date: 20191230
  Transmission Date: 20200122
  Serious: Yes (Other)
  Sender: FDA-Public Use
  Company Number: CA-PFIZER INC-2019555729

PATIENT
  Age: 73 Year
  Sex: Male

DRUGS (3)
  1. SUTENT [Suspect]
     Active Substance: SUNITINIB MALATE
     Dosage: UNK
     Route: 065
  2. GLEEVEC [Suspect]
     Active Substance: IMATINIB MESYLATE
     Indication: GASTROINTESTINAL STROMAL TUMOUR
     Dosage: 400 MG, 1X/DAY
     Route: 048
  3. GLEEVEC [Suspect]
     Active Substance: IMATINIB MESYLATE
     Dosage: 400 MG, 2X/DAY
     Route: 048

REACTIONS (21)
  - Excessive cerumen production [Recovered/Resolved]
  - Memory impairment [Recovered/Resolved]
  - Pain [Recovered/Resolved]
  - Acne [Recovered/Resolved]
  - Abdominal distension [Recovered/Resolved]
  - Rash papular [Recovered/Resolved]
  - Pleural effusion [Recovered/Resolved]
  - Pollakiuria [Recovered/Resolved]
  - Asthenia [Recovered/Resolved]
  - Skin discolouration [Recovered/Resolved]
  - Dyspnoea [Recovered/Resolved]
  - Fatigue [Recovered/Resolved]
  - Dizziness [Recovered/Resolved]
  - Peripheral swelling [Recovered/Resolved]
  - Vitamin B12 decreased [Recovered/Resolved]
  - Dry skin [Recovered/Resolved]
  - Gait disturbance [Recovered/Resolved]
  - Abdominal pain [Recovered/Resolved]
  - Arthralgia [Recovered/Resolved]
  - Nausea [Recovered/Resolved]
  - Hypoacusis [Recovered/Resolved]
